FAERS Safety Report 8133928-X (Version None)
Quarter: 2012Q1

REPORT INFORMATION
  Report Type: 
  Country: None (occurrence: None)
  Receive Date: 20120213
  Receipt Date: 20120207
  Transmission Date: 20120608
  Serious: Yes (Life-Threatening, Other)
  Sender: FDA-Public Use
  Company Number: US-ASTRAZENECA-2010SE09816

PATIENT
  Age: 48 Year
  Sex: Female
  Weight: 88 kg

DRUGS (6)
  1. SEROQUEL [Suspect]
     Route: 048
  2. SEROQUEL [Suspect]
     Indication: BIPOLAR II DISORDER
     Route: 048
     Dates: start: 20080101
  3. XANAX [Concomitant]
  4. AMBIEN [Concomitant]
  5. SEROQUEL [Suspect]
     Route: 048
  6. SYNTHROID [Concomitant]

REACTIONS (7)
  - ADVERSE EVENT [None]
  - THYROID CANCER [None]
  - MORBID THOUGHTS [None]
  - MENTAL DISORDER [None]
  - WEIGHT INCREASED [None]
  - INCORRECT DOSE ADMINISTERED [None]
  - SUICIDAL IDEATION [None]
